FAERS Safety Report 7624755-8 (Version None)
Quarter: 2011Q3

REPORT INFORMATION
  Report Type: 
  Country: None (occurrence: None)
  Receive Date: 20110720
  Receipt Date: 20110708
  Transmission Date: 20111222
  Serious: Yes (Other)
  Sender: FDA-Public Use
  Company Number: US-AMGEN-USASP2011027613

PATIENT
  Age: 44 Year
  Sex: Female

DRUGS (2)
  1. ENBREL [Suspect]
     Indication: PSORIATIC ARTHROPATHY
     Dosage: 50 MG, QWK
     Dates: start: 20100525, end: 20110517
  2. TREXALL [Concomitant]
     Dosage: 1 MG, QWK
     Dates: start: 20100101

REACTIONS (10)
  - PSORIATIC ARTHROPATHY [None]
  - BRONCHITIS [None]
  - INJECTION SITE EXTRAVASATION [None]
  - H1N1 INFLUENZA [None]
  - DYSPHAGIA [None]
  - DYSPNOEA [None]
  - PULMONARY MASS [None]
  - AIRWAY COMPLICATION OF ANAESTHESIA [None]
  - DRUG EFFECT DECREASED [None]
  - CHRONIC SINUSITIS [None]
